FAERS Safety Report 18044026 (Version 1)
Quarter: 2020Q3

REPORT INFORMATION
  Report Type: Spontaneous
  Country: US (occurrence: US)
  Receive Date: 20200717
  Receipt Date: 20200717
  Transmission Date: 20201103
  Serious: Yes (Hospitalization)
  Sender: FDA-Public Use
  Company Number: None

PATIENT
  Age: 65 Year
  Sex: Male
  Weight: 68.6 kg

DRUGS (2)
  1. AXICABTAGENE CILOLEUCEL [Suspect]
     Active Substance: AXICABTAGENE CILOLEUCEL
     Indication: DIFFUSE LARGE B-CELL LYMPHOMA
     Route: 042
     Dates: start: 20200602, end: 20200602
  2. AXICABTAGENE CILOLEUCEL [Suspect]
     Active Substance: AXICABTAGENE CILOLEUCEL
     Indication: HIV INFECTION
     Route: 042
     Dates: start: 20200602, end: 20200602

REACTIONS (22)
  - Nervous system disorder [None]
  - Lethargy [None]
  - Delirium [None]
  - Headache [None]
  - Sepsis [None]
  - Blood pressure decreased [None]
  - Abdominal pain [None]
  - Nausea [None]
  - Agitation [None]
  - Night sweats [None]
  - Neurosyphilis [None]
  - Diarrhoea [None]
  - Metabolic encephalopathy [None]
  - Hypernatraemia [None]
  - Adrenal mass [None]
  - Ascites [None]
  - Infection [None]
  - Chills [None]
  - Computerised tomogram abnormal [None]
  - Cytomegalovirus test positive [None]
  - Malaise [None]
  - Confusional state [None]

NARRATIVE: CASE EVENT DATE: 20200602
